FAERS Safety Report 16846045 (Version 1)
Quarter: 2019Q3

REPORT INFORMATION
  Report Type: Report from Study
  Country: CA (occurrence: CA)
  Receive Date: 20190924
  Receipt Date: 20190924
  Transmission Date: 20191005
  Serious: Yes (Hospitalization)
  Sender: FDA-Public Use
  Company Number: CA-BAYER-2019-141240

PATIENT
  Age: 77 Year
  Sex: Female

DRUGS (1)
  1. STIVARGA [Suspect]
     Active Substance: REGORAFENIB
     Indication: COLORECTAL CANCER METASTATIC
     Dosage: 160 MG, QD 160 MG, QD 3 WEEKS ON, 1 WEEK OFF
     Dates: start: 20190723

REACTIONS (8)
  - Constipation [Not Recovered/Not Resolved]
  - Headache [Not Recovered/Not Resolved]
  - Skin lesion [Recovering/Resolving]
  - Energy increased [None]
  - Fatigue [None]
  - Aphonia [Not Recovered/Not Resolved]
  - Pain in extremity [None]
  - Hospitalisation [Not Recovered/Not Resolved]

NARRATIVE: CASE EVENT DATE: 20190723
